FAERS Safety Report 7448294-2 (Version None)
Quarter: 2011Q2

REPORT INFORMATION
  Report Type: 
  Country: None (occurrence: None)
  Receive Date: 20110429
  Receipt Date: 20110420
  Transmission Date: 20111010
  Serious: Yes (Hospitalization)
  Sender: FDA-Public Use
  Company Number: CHPA2011FR05795

PATIENT
  Sex: Male

DRUGS (4)
  1. RISPERIDONE [Suspect]
     Indication: HYPOMANIA
     Dosage: 2 MG, BID
     Route: 048
     Dates: start: 20110212, end: 20110219
  2. ATARAX [Suspect]
     Dosage: 25 MG, QID
     Route: 048
     Dates: start: 20110212
  3. DEPAKOTE [Suspect]
     Indication: HYPOMANIA
     Dosage: 250 MG, BID
     Route: 048
     Dates: start: 20110212
  4. NICOTINELL TTS [Suspect]
     Indication: SMOKING CESSATION THERAPY
     Dosage: 1 DF, QD
     Route: 062
     Dates: start: 20110215

REACTIONS (4)
  - RASH MACULO-PAPULAR [None]
  - URTICARIA [None]
  - PRURITUS [None]
  - OEDEMA [None]
